FAERS Safety Report 21638153 (Version 4)
Quarter: 2023Q1

REPORT INFORMATION
  Report Type: Report from Study
  Country: CA (occurrence: CA)
  Receive Date: 20221124
  Receipt Date: 20230128
  Transmission Date: 20230418
  Serious: Yes (Other)
  Sender: FDA-Public Use
  Company Number: CA-TAKEDA-2022TUS087718

PATIENT
  Age: 47 Year
  Sex: Female

DRUGS (4)
  1. VEDOLIZUMAB [Suspect]
     Active Substance: VEDOLIZUMAB
     Indication: Colitis ulcerative
     Dosage: 300 MILLIGRAM
     Route: 042
     Dates: start: 20220513
  2. VEDOLIZUMAB [Suspect]
     Active Substance: VEDOLIZUMAB
     Indication: Colitis ulcerative
     Dosage: 108 MILLIGRAM
     Route: 058
     Dates: start: 20221013
  3. PREDNISONE [Concomitant]
     Active Substance: PREDNISONE
     Dosage: UNK
     Dates: start: 20220408
  4. IRON [Concomitant]
     Active Substance: IRON
     Dosage: 300 MILLIGRAM

REACTIONS (3)
  - Colitis ulcerative [Unknown]
  - Abdominal discomfort [Unknown]
  - Drug ineffective [Unknown]
